FAERS Safety Report 10094828 (Version 3)
Quarter: 2014Q2

REPORT INFORMATION
  Report Type: Spontaneous
  Country: FR (occurrence: FR)
  Receive Date: 20140422
  Receipt Date: 20140516
  Transmission Date: 20141212
  Serious: Yes (Death, Hospitalization)
  Sender: FDA-Public Use
  Company Number: 2014SP002240

PATIENT
  Age: 68 Year
  Sex: Female

DRUGS (11)
  1. DOXORUBICIN [Suspect]
     Indication: PRODUCT USED FOR UNKNOWN INDICATION
     Route: 042
     Dates: start: 20130923, end: 20130926
  2. VINCRISTINE [Suspect]
     Indication: PRODUCT USED FOR UNKNOWN INDICATION
     Route: 042
     Dates: start: 20130923, end: 20130926
  3. DECTANCYL [Concomitant]
     Route: 048
     Dates: start: 201307
  4. DECTANCYL [Concomitant]
  5. EPREX [Concomitant]
     Route: 058
     Dates: start: 20130918
  6. INEXIUM /01479302/ [Concomitant]
     Route: 048
  7. SKENAN [Concomitant]
     Route: 048
  8. DAFALGAN [Concomitant]
     Route: 048
  9. TAREG [Concomitant]
     Route: 048
     Dates: end: 20130928
  10. LIPANTHYL [Concomitant]
     Route: 048
     Dates: end: 20130928
  11. AMOXICILLIN TRIHYDRATE [Concomitant]
     Dates: start: 201309

REACTIONS (4)
  - General physical health deterioration [Fatal]
  - Myocardial infarction [Recovered/Resolved with Sequelae]
  - Angina pectoris [Recovered/Resolved with Sequelae]
  - Chest pain [Recovered/Resolved with Sequelae]
